FAERS Safety Report 4696456-X (Version None)
Quarter: 2005Q2

REPORT INFORMATION
  Report Type: 
  Country: None (occurrence: None)
  Receive Date: 20050620
  Receipt Date: 20050610
  Transmission Date: 20051028
  Serious: Yes (Hospitalization, Other)
  Sender: FDA-Public Use
  Company Number: 2005065081

PATIENT
  Age: 68 Year
  Sex: Female

DRUGS (9)
  1. LIPITOR [Suspect]
     Indication: HYPERCHOLESTEROLAEMIA
     Dosage: 80 MG (80 MG,1 IN 1 D), ORAL
     Route: 048
     Dates: end: 20050401
  2. AVANDIA [Suspect]
     Indication: DIABETES MELLITUS NON-INSULIN-DEPENDENT
     Dosage: 8 MG (4 MG, 2 IN 1 D), ORAL
     Route: 048
  3. PREVACID [Concomitant]
  4. LOTREL [Concomitant]
  5. ACETYLSALICYLIC ACID SRT [Concomitant]
  6. GLIPIZIDE [Concomitant]
  7. METOPROLOL TARTRATE [Concomitant]
  8. LASIX [Concomitant]
  9. ACETAMINOPHEN [Concomitant]

REACTIONS (11)
  - ALBUMIN URINE PRESENT [None]
  - BLOOD CREATININE INCREASED [None]
  - BLOOD UREA INCREASED [None]
  - CHOLECYSTECTOMY [None]
  - DEHYDRATION [None]
  - HAEMANGIOMA OF LIVER [None]
  - LIPASE INCREASED [None]
  - NAUSEA [None]
  - RENAL ATROPHY [None]
  - ULTRASOUND SCAN ABNORMAL [None]
  - VOMITING [None]
